FAERS Safety Report 5638845-2 (Version None)
Quarter: 2008Q1

REPORT INFORMATION
  Report Type: 
  Country: None (occurrence: None)
  Receive Date: 20080222
  Receipt Date: 20080222
  Transmission Date: 20080703
  Serious: Yes (Hospitalization)
  Sender: FDA-Public Use
  Company Number: None

PATIENT
  Age: 78 Year
  Sex: Female
  Weight: 83.4619 kg

DRUGS (3)
  1. ERLOTINIB 150 MG [Suspect]
     Indication: NON-SMALL CELL LUNG CANCER
     Dosage: 150 MG DAILY 047
     Dates: start: 20070906, end: 20071001
  2. BEVACIZUMAB 15 MG/KG [Suspect]
     Indication: NON-SMALL CELL LUNG CANCER
     Dosage: 15 MG/KG EVERY 3 WEEKS 041
     Dates: start: 20070906
  3. BEVACIZUMAB 15 MG/KG [Suspect]
     Indication: NON-SMALL CELL LUNG CANCER
     Dosage: 15 MG/KG EVERY 3 WEEKS 041
     Dates: start: 20070926

REACTIONS (2)
  - DEHYDRATION [None]
  - PYREXIA [None]
